FAERS Safety Report 6760995-8 (Version None)
Quarter: 2010Q2

REPORT INFORMATION
  Report Type: 
  Country: None (occurrence: None)
  Receive Date: 20100608
  Receipt Date: 20100602
  Transmission Date: 20101027
  Serious: Yes (Death, Hospitalization)
  Sender: FDA-Public Use
  Company Number: A0862805A

PATIENT
  Age: 47 Year
  Sex: Male
  Weight: 83.6 kg

DRUGS (7)
  1. AVANDIA [Suspect]
     Indication: DIABETES MELLITUS
     Dosage: 4MG TWICE PER DAY
     Route: 048
     Dates: start: 19990101, end: 20000101
  2. NEURONTIN [Concomitant]
  3. LANOXIN [Concomitant]
  4. ATENOLOL [Concomitant]
  5. AMITRIPTYLINE [Concomitant]
  6. KDUR [Concomitant]
  7. HUMULIN R [Concomitant]

REACTIONS (1)
  - CARDIAC ARREST [None]
